FAERS Safety Report 8134636-1 (Version None)
Quarter: 2012Q1

REPORT INFORMATION
  Report Type: 
  Country: None (occurrence: None)
  Receive Date: 20120214
  Receipt Date: 20120213
  Transmission Date: 20120608
  Serious: Yes (Hospitalization, Other)
  Sender: FDA-Public Use
  Company Number: ES-PFIZER INC-2012037771

PATIENT
  Age: 80 Year
  Sex: Male

DRUGS (10)
  1. FUROSEMIDE [Concomitant]
     Dosage: 40 MG, 1X/DAY
     Route: 048
     Dates: start: 20050801
  2. DIOVAN HCT [Interacting]
     Indication: HYPERTENSION
     Dosage: [HYDROCHLOROTHIAZIDE 12.5 MG]/[VALSARTAN 160 MG], 1X/DAY
     Route: 048
     Dates: start: 20110101, end: 20110420
  3. TAMSULOSIN HYDROCHLORIDE [Interacting]
     Indication: BENIGN PROSTATIC HYPERPLASIA
     Dosage: 0.4 MG, 1X/DAY
     Route: 048
     Dates: start: 20100501, end: 20110420
  4. ASPIRIN [Concomitant]
     Dosage: 100 MG, 1X/DAY
     Route: 048
  5. OXEZE TURBUHALER [Concomitant]
     Dosage: 4.5 UG, 2X/DAY
     Route: 055
  6. CARDURA [Suspect]
     Indication: HYPERTENSION
     Dosage: 8 MG, 1X/DAY
     Route: 048
     Dates: start: 20110101, end: 20110420
  7. NORVASC [Interacting]
     Indication: HYPERTENSION
     Dosage: 10 MG, 1X/DAY
     Route: 048
     Dates: start: 20110101, end: 20110420
  8. HUMALOG [Concomitant]
     Indication: TYPE 2 DIABETES MELLITUS
     Dosage: 10 IU, 3X/DAY
     Route: 058
  9. METFORMIN HCL [Concomitant]
     Indication: TYPE 2 DIABETES MELLITUS
     Dosage: 850 MG, 3X/DAY
     Route: 048
     Dates: end: 20110420
  10. LEVEMIR [Concomitant]
     Indication: TYPE 2 DIABETES MELLITUS
     Dosage: 22 IU, 2X/DAY
     Route: 058

REACTIONS (3)
  - SYNCOPE [None]
  - HYPOTENSION [None]
  - DRUG INTERACTION [None]
